FAERS Safety Report 17696350 (Version 1)
Quarter: 2020Q2

REPORT INFORMATION
  Report Type: Spontaneous
  Country: US (occurrence: US)
  Receive Date: 20200423
  Receipt Date: 20200423
  Transmission Date: 20200714
  Serious: No
  Sender: FDA-Public Use
  Company Number: US-PURDUE-USA-2020-0150540

PATIENT

DRUGS (1)
  1. OXYCONTIN [Suspect]
     Active Substance: OXYCODONE HYDROCHLORIDE
     Indication: FIBROMYALGIA
     Dosage: UNK
     Route: 048
     Dates: start: 201101

REACTIONS (6)
  - Social avoidant behaviour [Unknown]
  - Inadequate analgesia [Unknown]
  - Unevaluable event [Unknown]
  - Personality change [Unknown]
  - Loss of personal independence in daily activities [Unknown]
  - Drooling [Unknown]
